FAERS Safety Report 10409276 (Version 1)
Quarter: 2014Q1

REPORT INFORMATION
  Report Type: Spontaneous
  Country: US (occurrence: None)
  Receive Date: 20140109
  Receipt Date: 20140109
  Transmission Date: 20141002
  Serious: Yes (Hospitalization)
  Sender: FDA-Public Use
  Company Number: 384374N

PATIENT
  Age: 80 Year
  Sex: Male

DRUGS (2)
  1. LEVEMIR [Suspect]
     Indication: TYPE 2 DIABETES MELLITUS
     Route: 058
     Dates: start: 2011
  2. COUMADIN (WARFARIN SODIUM) [Concomitant]

REACTIONS (2)
  - Blood glucose decreased [None]
  - Blood glucose increased [None]
